FAERS Safety Report 22689516 (Version 4)
Quarter: 2024Q4

REPORT INFORMATION
  Report Type: Other
  Country: PL (occurrence: PL)
  Receive Date: 20230711
  Receipt Date: 20241111
  Transmission Date: 20250115
  Serious: Yes (Other)
  Sender: TOLMAR
  Company Number: PL-002147023-NVSC2020PL141147

PATIENT
  Age: 70 Year
  Sex: Male

DRUGS (8)
  1. UNSPECIFIED INGREDIENT [Suspect]
     Active Substance: UNSPECIFIED INGREDIENT
     Indication: Product used for unknown indication
     Dosage: UNK
  2. ZOLEDRONIC ACID [Suspect]
     Active Substance: ZOLEDRONIC ACID
     Indication: Metastases to bone
     Dosage: UNK
     Dates: start: 2016
  3. ZOLEDRONIC ACID [Suspect]
     Active Substance: ZOLEDRONIC ACID
     Indication: Prophylaxis
  4. BICALUTAMIDE [Suspect]
     Active Substance: BICALUTAMIDE
     Indication: Cancer hormonal therapy
     Dosage: 50 MILLIGRAM, QD
     Route: 048
     Dates: start: 2016
  5. BICALUTAMIDE [Suspect]
     Active Substance: BICALUTAMIDE
     Indication: Adenocarcinoma
     Dosage: 50 MILLIGRAM, EVERY HOUR
     Route: 048
  6. BICALUTAMIDE [Suspect]
     Active Substance: BICALUTAMIDE
     Indication: Hormone therapy
  7. BICALUTAMIDE [Suspect]
     Active Substance: BICALUTAMIDE
     Indication: Metastases to bone
  8. DOCETAXEL [Suspect]
     Active Substance: DOCETAXEL
     Indication: Prostate cancer
     Dosage: 75 MILLIGRAM PER SQUARE METRE (EVERY 21 DAYS)

REACTIONS (8)
  - Neutropenia [Unknown]
  - Peripheral sensory neuropathy [Unknown]
  - Neoplasm progression [Unknown]
  - Prostatic specific antigen increased [Unknown]
  - Hot flush [Recovered/Resolved]
  - Asthenia [Recovered/Resolved]
  - Skin disorder [Unknown]
  - Anaemia [Unknown]
